FAERS Safety Report 4482331-2 (Version None)
Quarter: 2004Q4

REPORT INFORMATION
  Report Type: 
  Country: None (occurrence: None)
  Receive Date: 20041022
  Receipt Date: 20040922
  Transmission Date: 20050328
  Serious: Yes (Hospitalization)
  Sender: FDA-Public Use
  Company Number: FR-ROCHE-381208

PATIENT
  Age: 41 Year
  Sex: Male
  Weight: 60 kg

DRUGS (13)
  1. FUZEON [Suspect]
     Indication: HIV INFECTION
     Route: 058
     Dates: start: 20040826
  2. BACTRIM [Concomitant]
     Indication: PROPHYLAXIS
  3. AZADOSE [Concomitant]
     Indication: PROPHYLAXIS
     Dosage: FOR THIRTY DAYS.
     Dates: start: 20030403
  4. VIRAMUNE [Concomitant]
     Indication: HIV INFECTION
     Dates: start: 20040310
  5. VIREAD [Concomitant]
     Indication: HIV INFECTION
  6. KALETRA [Concomitant]
     Indication: HIV INFECTION
     Dosage: FOR THIRTY DAYS.
     Dates: start: 20030123
  7. EPIVIR [Concomitant]
     Indication: HIV INFECTION
     Dates: start: 20040510
  8. CRIXIVAN [Concomitant]
     Indication: HIV INFECTION
     Dates: start: 20040310, end: 20040410
  9. NORVIR [Concomitant]
     Indication: HIV INFECTION
     Dates: start: 20040310, end: 20040410
  10. TRIZIVIR [Concomitant]
     Indication: HIV INFECTION
     Dates: start: 20040310, end: 20040410
  11. ZIAGEN [Concomitant]
     Indication: HIV INFECTION
     Dates: start: 20040510, end: 20040722
  12. VIDEX [Concomitant]
     Indication: HIV INFECTION
     Dates: start: 20040310, end: 20040722
  13. AMPRENAVIR [Concomitant]
     Indication: HIV INFECTION
     Dates: start: 20040604, end: 20040722

REACTIONS (2)
  - EXTRAPYRAMIDAL DISORDER [None]
  - MOTOR DYSFUNCTION [None]
